FAERS Safety Report 6490634-5 (Version None)
Quarter: 2009Q4

REPORT INFORMATION
  Report Type: 
  Country: None (occurrence: None)
  Receive Date: 20091211
  Receipt Date: 20091201
  Transmission Date: 20100525
  Serious: Yes (Hospitalization)
  Sender: FDA-Public Use
  Company Number: A0834290A

PATIENT
  Age: 71 Year
  Sex: Female

DRUGS (2)
  1. AVANDAMET [Suspect]
     Dosage: 2MG TWICE PER DAY
     Route: 048
     Dates: start: 19970101, end: 20080101
  2. AVANDIA [Suspect]

REACTIONS (1)
  - CEREBROVASCULAR ACCIDENT [None]
